FAERS Safety Report 6598102-7 (Version None)
Quarter: 2010Q1

REPORT INFORMATION
  Report Type: 
  Country: None (occurrence: None)
  Receive Date: 20100224
  Receipt Date: 20050725
  Transmission Date: 20100710
  Serious: No
  Sender: FDA-Public Use
  Company Number: US-ALLERGAN-200502870

PATIENT
  Age: 51 Year
  Sex: Female

DRUGS (1)
  1. BOTOX [Suspect]
     Indication: DRUG USE FOR UNKNOWN INDICATION
     Route: 030
     Dates: start: 20050208

REACTIONS (4)
  - BODY TEMPERATURE FLUCTUATION [None]
  - INJECTION SITE PAIN [None]
  - MUSCULAR WEAKNESS [None]
  - PRURITUS GENERALISED [None]
